FAERS Safety Report 7424728-4 (Version None)
Quarter: 2011Q2

REPORT INFORMATION
  Report Type: 
  Country: None (occurrence: None)
  Receive Date: 20110419
  Receipt Date: 20110401
  Transmission Date: 20111010
  Serious: Yes (Hospitalization)
  Sender: FDA-Public Use
  Company Number: FR-BAXTER-2011BH008989

PATIENT
  Age: 80 Year
  Sex: Female

DRUGS (1)
  1. GAMMAGARD LIQUID [Suspect]
     Indication: THROMBOCYTOPENIC PURPURA
     Route: 042
     Dates: start: 20110325, end: 20110325

REACTIONS (6)
  - HYPERTENSION [None]
  - PRURITUS [None]
  - SCRATCH [None]
  - FEELING ABNORMAL [None]
  - MYALGIA [None]
  - BLISTER [None]
